FAERS Safety Report 12193933 (Version 1)
Quarter: 2016Q1

REPORT INFORMATION
  Report Type: Spontaneous
  Country: US (occurrence: US)
  Receive Date: 20160321
  Receipt Date: 20160321
  Transmission Date: 20160526
  Serious: No
  Sender: FDA-Public Use
  Company Number: US-009507513-1603USA005804

PATIENT
  Sex: Female

DRUGS (1)
  1. NEXPLANON [Suspect]
     Active Substance: ETONOGESTREL
     Dosage: 3 YEAR IMPLANT, IN ARM
     Route: 059
     Dates: start: 2014

REACTIONS (3)
  - Menorrhagia [Unknown]
  - Mood swings [Unknown]
  - Headache [Unknown]

NARRATIVE: CASE EVENT DATE: 2014
